FAERS Safety Report 8015432-2 (Version None)
Quarter: 2011Q4

REPORT INFORMATION
  Report Type: 
  Country: None (occurrence: None)
  Receive Date: 20111230
  Receipt Date: 20111219
  Transmission Date: 20120403
  Serious: Yes (Congenital Anomaly, Other)
  Sender: FDA-Public Use
  Company Number: GB-BRISTOL-MYERS SQUIBB COMPANY-16089328

PATIENT
  Age: 1 Day
  Sex: Male

DRUGS (11)
  1. ATRIPLA [Suspect]
     Dosage: ALSO TAKEN FROM SEP-2011 16JUN2010-AUG2010
     Route: 064
     Dates: start: 20100616, end: 20100801
  2. RAMIPRIL [Concomitant]
  3. METFORMIN HCL [Concomitant]
  4. ATAZANAVIR [Suspect]
     Route: 064
     Dates: start: 20100801, end: 20110901
  5. TRUVADA [Suspect]
     Dosage: 1DF=TAB/CAPS.
     Route: 064
     Dates: start: 20100316, end: 20100616
  6. ZIDOVUDINE [Concomitant]
     Route: 042
  7. ASPIRIN [Concomitant]
  8. FERROUS SULFATE TAB [Concomitant]
  9. NORVIR [Suspect]
     Route: 064
     Dates: start: 20100801, end: 20110901
  10. LABETALOL HCL [Concomitant]
  11. INSULIN [Concomitant]

REACTIONS (5)
  - CONGENITAL TERATOMA [None]
  - FACIAL PARESIS [None]
  - CRYPTORCHISM [None]
  - CONJUNCTIVAL HAEMORRHAGE [None]
  - RESPIRATORY DISTRESS [None]
